FAERS Safety Report 7051031-7 (Version None)
Quarter: 2010Q4

REPORT INFORMATION
  Report Type: 
  Country: None (occurrence: None)
  Receive Date: 20101019
  Receipt Date: 20101004
  Transmission Date: 20110411
  Serious: Yes (Hospitalization)
  Sender: FDA-Public Use
  Company Number: US-BAYER-201028006NA

PATIENT
  Age: 22 Year
  Sex: Female
  Weight: 61 kg

DRUGS (3)
  1. YASMIN [Suspect]
     Indication: CONTRACEPTION
     Route: 048
     Dates: start: 20050901, end: 20080301
  2. TYLENOL-500 [Concomitant]
     Indication: PAIN
     Dates: start: 19980101, end: 20100101
  3. ADVIL [Concomitant]
     Indication: PAIN
     Dates: start: 19980101, end: 20100101

REACTIONS (4)
  - CHOLELITHIASIS [None]
  - GALLBLADDER DISORDER [None]
  - PAIN [None]
  - POST PROCEDURAL COMPLICATION [None]
